FAERS Safety Report 5233856-3 (Version None)
Quarter: 2007Q1

REPORT INFORMATION
  Report Type: 
  Country: None (occurrence: None)
  Receive Date: 20061208
  Receipt Date: 20060316
  Transmission Date: 20070707
  Serious: Yes (Other)
  Sender: FDA-Public Use
  Company Number: 2006UW04477

PATIENT
  Age: 80 Year
  Sex: Female
  Weight: 56.699 kg

DRUGS (4)
  1. CRESTOR [Suspect]
     Indication: HYPERCHOLESTEROLAEMIA
     Dosage: 10 MG PO
     Route: 047
     Dates: start: 20050101
  2. BENICAR [Concomitant]
  3. TIMOLOL MALEATE [Concomitant]
  4. LUMIGAN [Concomitant]

REACTIONS (2)
  - PHOTOPHOBIA [None]
  - VISION BLURRED [None]
